FAERS Safety Report 5994326-8 (Version None)
Quarter: 2008Q4

REPORT INFORMATION
  Report Type: 
  Country: None (occurrence: None)
  Receive Date: 20081212
  Receipt Date: 20080908
  Transmission Date: 20090506
  Serious: No
  Sender: FDA-Public Use
  Company Number: US-ABBOTT-08P-163-0474848-00

PATIENT
  Sex: Female

DRUGS (5)
  1. HUMIRA [Suspect]
     Indication: RHEUMATOID ARTHRITIS
     Dates: start: 20051001, end: 20080301
  2. HUMIRA [Suspect]
     Dates: start: 20080601, end: 20080701
  3. AREVA [Concomitant]
     Indication: DRUG USE FOR UNKNOWN INDICATION
     Route: 048
     Dates: end: 20080801
  4. LEXIPRO [Concomitant]
     Indication: DRUG USE FOR UNKNOWN INDICATION
     Route: 048
     Dates: end: 20080801
  5. PREGABALIN [Concomitant]
     Indication: DRUG USE FOR UNKNOWN INDICATION
     Route: 048
     Dates: end: 20080801

REACTIONS (12)
  - BLOOD PRESSURE ABNORMAL [None]
  - CHEST DISCOMFORT [None]
  - COUGH [None]
  - DRUG INEFFECTIVE [None]
  - HEART RATE DECREASED [None]
  - INSOMNIA [None]
  - JOINT SWELLING [None]
  - NEUROPATHY PERIPHERAL [None]
  - PANCREATITIS [None]
  - SLEEP APNOEA SYNDROME [None]
  - SNORING [None]
  - SYNCOPE [None]
